FAERS Safety Report 17108383 (Version 1)
Quarter: 2019Q4

REPORT INFORMATION
  Report Type: Report from Study
  Country: FR (occurrence: FR)
  Receive Date: 20191203
  Receipt Date: 20191203
  Transmission Date: 20200122
  Serious: Yes (Death, Life-Threatening)
  Sender: FDA-Public Use
  Company Number: FR-PFIZER INC-2019516613

PATIENT
  Sex: Female

DRUGS (2)
  1. GEMCITABINE HYDROCHLORIDE. [Suspect]
     Active Substance: GEMCITABINE HYDROCHLORIDE
     Indication: BREAST CANCER METASTATIC
     Dosage: 800 MG/M2 ON DAYS 1 AND 8 OF 21-DAY CYCLES (DOSE LEVEL 1)
     Route: 042
  2. EPIRUBICIN HCL [Suspect]
     Active Substance: EPIRUBICIN HYDROCHLORIDE
     Indication: BREAST CANCER METASTATIC
     Dosage: 50 MG/M2 ON DAY 1 OF 21-DAY CYCLES (DOSE LEVEL 1)
     Route: 042

REACTIONS (3)
  - Pneumonia [Fatal]
  - Septic shock [Fatal]
  - Infection [Unknown]
